FAERS Safety Report 10268221 (Version 1)
Quarter: 2014Q2

REPORT INFORMATION
  Report Type: Spontaneous
  Country: GB (occurrence: GB)
  Receive Date: 20140630
  Receipt Date: 20140630
  Transmission Date: 20141212
  Serious: Yes (Other)
  Sender: FDA-Public Use
  Company Number: PHFR2014GB004388

PATIENT
  Sex: Male

DRUGS (5)
  1. CLOMIPRAMINE [Suspect]
     Dosage: UNK UKN, UNK
     Dates: start: 2014
  2. CLOMIPRAMINE [Suspect]
     Dosage: UNK UKN, UNK
  3. DOSULEPIN [Suspect]
     Dosage: UNK UKN, UNK
     Dates: start: 2014, end: 2014
  4. LOFEPRAMINE [Suspect]
     Dosage: UNK UKN, UNK
     Dates: start: 2014, end: 2014
  5. LOFEPRAMINE [Suspect]
     Dosage: DOSE WAS REDUCED GRADUALLY

REACTIONS (10)
  - Panic reaction [Unknown]
  - Obsessive thoughts [Unknown]
  - Malaise [Unknown]
  - Depression [Unknown]
  - Fear [Unknown]
  - Agitation [Unknown]
  - Anxiety [Unknown]
  - Nausea [Unknown]
  - Fatigue [Unknown]
  - Sleep disorder [Unknown]
